FAERS Safety Report 13362806 (Version 1)
Quarter: 2017Q1

REPORT INFORMATION
  Report Type: Spontaneous
  Country: US (occurrence: US)
  Receive Date: 20170322
  Receipt Date: 20170322
  Transmission Date: 20170429
  Serious: Yes (Death)
  Sender: FDA-Public Use
  Company Number: None

PATIENT
  Age: 41 Year
  Sex: Male

DRUGS (2)
  1. INLYTA [Suspect]
     Active Substance: AXITINIB
     Indication: MULTIPLE SCLEROSIS
     Route: 048
     Dates: start: 20141024
  2. XANAX [Concomitant]
     Active Substance: ALPRAZOLAM

REACTIONS (1)
  - Death [None]

NARRATIVE: CASE EVENT DATE: 201703
